FAERS Safety Report 20510322 (Version 1)
Quarter: 2022Q1

REPORT INFORMATION
  Report Type: Spontaneous
  Country: US (occurrence: PR)
  Receive Date: 20220224
  Receipt Date: 20220224
  Transmission Date: 20220424
  Serious: No
  Sender: FDA-Public Use
  Company Number: US-PFIZER INC-2021582724

PATIENT
  Age: 17 Year
  Sex: Female
  Weight: 67.13 kg

DRUGS (4)
  1. GENOTROPIN [Suspect]
     Active Substance: SOMATROPIN
     Indication: Growth disorder
     Dosage: 0.2 MG, DAILY (INJECTED NIGHTLY)
     Dates: start: 201903
  2. SYNTHROID [Concomitant]
     Active Substance: LEVOTHYROXINE SODIUM
     Indication: Thyroid disorder
     Dosage: 150 UG, DAILY
     Dates: start: 2015
  3. CORTEF [Concomitant]
     Active Substance: HYDROCORTISONE
     Indication: Brain neoplasm malignant
     Dosage: 10 MG, 2X/DAY
     Dates: start: 2015
  4. DESMOPRESSIN [Concomitant]
     Active Substance: DESMOPRESSIN
     Indication: Brain neoplasm malignant
     Dosage: 0.5 MG, DAILY

REACTIONS (2)
  - Drug dose omission by device [Recovered/Resolved]
  - Device use issue [Unknown]

NARRATIVE: CASE EVENT DATE: 20210519
